FAERS Safety Report 7544592-2 (Version None)
Quarter: 2011Q2

REPORT INFORMATION
  Report Type: 
  Country: None (occurrence: None)
  Receive Date: 20110614
  Receipt Date: 20110606
  Transmission Date: 20111010
  Serious: Yes (Hospitalization)
  Sender: FDA-Public Use
  Company Number: US-BIOGENIDEC-2010BI040495

PATIENT
  Age: 45 Year
  Sex: Female

DRUGS (1)
  1. TYSABRI [Suspect]
     Indication: MULTIPLE SCLEROSIS
     Route: 042
     Dates: start: 20091002

REACTIONS (5)
  - CHOLECYSTITIS [None]
  - BARRETT'S OESOPHAGUS [None]
  - OBSTRUCTION GASTRIC [None]
  - GASTRIC BANDING [None]
  - HIATUS HERNIA [None]
